FAERS Safety Report 7571429-8 (Version None)
Quarter: 2011Q2

REPORT INFORMATION
  Report Type: 
  Country: None (occurrence: None)
  Receive Date: 20110624
  Receipt Date: 20110621
  Transmission Date: 20111010
  Serious: Yes (Hospitalization)
  Sender: FDA-Public Use
  Company Number: US-SANOFI-AVENTIS-2011SA037097

PATIENT
  Age: 68 Year
  Sex: Female
  Weight: 96.61 kg

DRUGS (6)
  1. LANTUS [Suspect]
     Indication: TYPE 2 DIABETES MELLITUS
     Dosage: DOSE:10 UNIT(S)
     Route: 058
     Dates: start: 20100101
  2. SOLOSTAR [Suspect]
     Indication: TYPE 2 DIABETES MELLITUS
     Dates: start: 20100101
  3. METFORMIN HCL [Concomitant]
  4. COZAAR [Concomitant]
  5. BYETTA [Concomitant]
  6. GLIMEPIRIDE [Concomitant]
     Dosage: IN THE MORNING

REACTIONS (1)
  - JOINT INJURY [None]
